FAERS Safety Report 7528432-3 (Version None)
Quarter: 2011Q2

REPORT INFORMATION
  Report Type: 
  Country: None (occurrence: None)
  Receive Date: 20110607
  Receipt Date: 20110111
  Transmission Date: 20111010
  Serious: No
  Sender: FDA-Public Use
  Company Number: US-ASTRAZENECA-2011SE04793

PATIENT
  Sex: Male

DRUGS (2)
  1. METFORMIN HCL [Concomitant]
     Indication: DIABETES MELLITUS
     Dosage: UNKNOWN.
  2. PRILOSEC OTC [Suspect]
     Indication: OESOPHAGITIS
     Dosage: UNK TABLET, UNK FREQUENCY.
     Route: 048

REACTIONS (1)
  - WEIGHT DECREASED [None]
